FAERS Safety Report 12948518 (Version 1)
Quarter: 2016Q4

REPORT INFORMATION
  Report Type: Spontaneous
  Country: US (occurrence: US)
  Receive Date: 20161117
  Receipt Date: 20161117
  Transmission Date: 20170207
  Serious: No
  Sender: FDA-Public Use
  Company Number: US-DRREDDYS-USA/USA/16/0081690

PATIENT
  Sex: Female
  Weight: 60.78 kg

DRUGS (2)
  1. FAMOTIDINE 10 MG OTC [Suspect]
     Active Substance: FAMOTIDINE
     Indication: GASTROOESOPHAGEAL REFLUX DISEASE
     Route: 048
  2. FAMOTIDINE 10 MG OTC [Suspect]
     Active Substance: FAMOTIDINE
     Indication: ABDOMINAL DISTENSION

REACTIONS (3)
  - Product label issue [Unknown]
  - Product packaging issue [Unknown]
  - Drug ineffective [Unknown]
